FAERS Safety Report 14159275 (Version 1)
Quarter: 2017Q4

REPORT INFORMATION
  Report Type: Report from Study
  Country: None (occurrence: IL)
  Receive Date: 20171103
  Receipt Date: 20171103
  Transmission Date: 20180321
  Serious: Yes (Other)
  Sender: FDA-Public Use
  Company Number: IL-ABBVIE-17K-082-1955199-00

PATIENT
  Age: 40 Year
  Sex: Female

DRUGS (3)
  1. SIMPONI [Suspect]
     Active Substance: GOLIMUMAB
     Indication: PRODUCT USED FOR UNKNOWN INDICATION
     Route: 065
     Dates: start: 201710
  2. HUMIRA [Suspect]
     Active Substance: ADALIMUMAB
     Indication: ANKYLOSING SPONDYLITIS
     Route: 058
     Dates: start: 20170320, end: 2017
  3. HUMIRA [Suspect]
     Active Substance: ADALIMUMAB
     Indication: ANKYLOSING SPONDYLITIS
     Route: 058
     Dates: start: 2017, end: 20170826

REACTIONS (15)
  - Injection site erythema [Recovered/Resolved]
  - Pruritus generalised [Recovering/Resolving]
  - Loss of consciousness [Recovered/Resolved]
  - Malaise [Unknown]
  - Injection site pain [Recovered/Resolved]
  - Dizziness [Not Recovered/Not Resolved]
  - Hypotension [Unknown]
  - Haemangioma [Not Recovered/Not Resolved]
  - Injection site hyperaesthesia [Recovered/Resolved]
  - Dizziness [Recovered/Resolved]
  - Chills [Recovering/Resolving]
  - Diarrhoea [Not Recovered/Not Resolved]
  - Nausea [Recovering/Resolving]
  - Drug ineffective [Not Recovered/Not Resolved]
  - Dysgeusia [Not Recovered/Not Resolved]

NARRATIVE: CASE EVENT DATE: 2017
